FAERS Safety Report 9649594 (Version 2)
Quarter: 2013Q4

REPORT INFORMATION
  Report Type: Spontaneous
  Country: DE (occurrence: None)
  Receive Date: 20131025
  Receipt Date: 20131125
  Transmission Date: 20140711
  Serious: Yes (Hospitalization)
  Sender: FDA-Public Use
  Company Number: 2013MPI00634

PATIENT
  Sex: 0

DRUGS (13)
  1. BRENTUXIMAB VEDOTIN [Suspect]
     Indication: HODGKIN^S DISEASE
     Dates: start: 20131004, end: 20131004
  2. ETOPOSIDE [Suspect]
     Indication: HODGKIN^S DISEASE
     Dates: start: 20131005, end: 20131007
  3. CYCLOPHOSPHAMIDE [Suspect]
     Indication: HODGKIN^S DISEASE
     Dates: start: 20131005, end: 20131005
  4. DOXORUBICIN [Suspect]
     Indication: HODGKIN^S DISEASE
     Dates: start: 20131005, end: 20131005
  5. DACARBAZINE [Suspect]
     Indication: HODGKIN^S DISEASE
     Dates: start: 20131006, end: 20131007
  6. DEXAMETHASONE [Suspect]
     Indication: HODGKIN^S DISEASE
     Dates: start: 20131005, end: 20131008
  7. NEULASTA (PEGFILGRASTIM) [Concomitant]
  8. COTRIM FORTE EU RHO (SULFAMETHOXAZOLE, TRIMETHOPRIM) [Concomitant]
  9. ASS (ACETYLSALICYLIC ACID) [Concomitant]
  10. BISOPROLOL (BISOPROLOL HEMIFUMARATE) [Concomitant]
  11. ATORVASTATIN (ATORVASTATIN CALCIUM) [Concomitant]
  12. PANTAZOL (PANTOPRAZOLE SODIUM) [Concomitant]
  13. CIPROFLOXACIN (CIPROFLOXACIN HYDROCHLORIDE) [Concomitant]

REACTIONS (3)
  - Petit mal epilepsy [None]
  - Pyrexia [None]
  - Sepsis [None]
